FAERS Safety Report 7239957-2 (Version None)
Quarter: 2011Q1

REPORT INFORMATION
  Report Type: 
  Country: None (occurrence: None)
  Receive Date: 20110124
  Receipt Date: 20110112
  Transmission Date: 20110831
  Serious: Yes (Other)
  Sender: FDA-Public Use
  Company Number: US-BIOGENIDEC-2009BI030405

PATIENT
  Sex: Female

DRUGS (1)
  1. AVONEX [Suspect]
     Indication: MULTIPLE SCLEROSIS
     Route: 030
     Dates: start: 20000222

REACTIONS (7)
  - OPTIC NEURITIS [None]
  - CORONARY ARTERY OCCLUSION [None]
  - HANGOVER [None]
  - INFLUENZA LIKE ILLNESS [None]
  - MYOCARDIAL INFARCTION [None]
  - DEPRESSION [None]
  - DRUG EFFECT DECREASED [None]
